FAERS Safety Report 8593808-2 (Version None)
Quarter: 2012Q3

REPORT INFORMATION
  Report Type: 
  Country: None (occurrence: None)
  Receive Date: 20120803
  Receipt Date: 20120803
  Transmission Date: 20120928
  Serious: Yes (Life-Threatening, Hospitalization)
  Sender: FDA-Public Use
  Company Number: None

PATIENT
  Age: 51 Year
  Sex: Male
  Weight: 105.2 kg

DRUGS (1)
  1. BUPROPION HCL [Suspect]
     Indication: DEPRESSION
     Dosage: MG PO
     Route: 048
     Dates: start: 20120329, end: 20120403

REACTIONS (7)
  - CONSTIPATION [None]
  - VITAMIN D DEFICIENCY [None]
  - ANAPHYLACTIC SHOCK [None]
  - SECONDARY HYPOGONADISM [None]
  - DRUG HYPERSENSITIVITY [None]
  - MERALGIA PARAESTHETICA [None]
  - HYPERTRIGLYCERIDAEMIA [None]
